FAERS Safety Report 6594550-X (Version None)
Quarter: 2010Q1

REPORT INFORMATION
  Report Type: 
  Country: None (occurrence: None)
  Receive Date: 20100222
  Receipt Date: 20100215
  Transmission Date: 20100710
  Serious: Yes (Death, Hospitalization, Other)
  Sender: FDA-Public Use
  Company Number: PHHO2009DE09103

PATIENT
  Sex: Male
  Weight: 85 kg

DRUGS (7)
  1. AFINITOR [Suspect]
     Indication: METASTATIC RENAL CELL CARCINOMA
     Dosage: 10 MG / DAY
     Route: 048
     Dates: start: 20090507, end: 20090608
  2. ALLOPURINOL [Concomitant]
     Dosage: UNK
  3. TOREM [Concomitant]
     Dosage: UNK
  4. SPIRONOLACTONE [Concomitant]
     Dosage: UNK
  5. DIGITOXIN INJ [Concomitant]
     Dosage: UNK
  6. METOHEXAL [Concomitant]
     Dosage: UNK
  7. LEVOTHYROXINE SODIUM [Concomitant]
     Dosage: UNK

REACTIONS (14)
  - ACIDOSIS [None]
  - ANAEMIA [None]
  - BENIGN PROSTATIC HYPERPLASIA [None]
  - BLADDER OBSTRUCTION [None]
  - CENTRAL VENOUS CATHETERISATION [None]
  - DEATH [None]
  - DIABETES MELLITUS [None]
  - GENERAL PHYSICAL HEALTH DETERIORATION [None]
  - HYPERKALAEMIA [None]
  - HYPONATRAEMIA [None]
  - MALIGNANT NEOPLASM PROGRESSION [None]
  - METABOLIC SYNDROME [None]
  - RENAL FAILURE [None]
  - URINARY TRACT INFECTION [None]
